FAERS Safety Report 7395985-8 (Version None)
Quarter: 2011Q2

REPORT INFORMATION
  Report Type: 
  Country: None (occurrence: None)
  Receive Date: 20110406
  Receipt Date: 20110329
  Transmission Date: 20111010
  Serious: No
  Sender: FDA-Public Use
  Company Number: US-BIOGENIDEC-2011BI012067

PATIENT
  Sex: Female

DRUGS (1)
  1. AVONEX [Suspect]
     Indication: MULTIPLE SCLEROSIS
     Route: 030
     Dates: start: 20100429

REACTIONS (5)
  - MUSCLE DISORDER [None]
  - INFLUENZA LIKE ILLNESS [None]
  - FATIGUE [None]
  - GAIT DISTURBANCE [None]
  - TREMOR [None]
